FAERS Safety Report 5655302-8 (Version None)
Quarter: 2008Q1

REPORT INFORMATION
  Report Type: 
  Country: None (occurrence: None)
  Receive Date: 20080219
  Receipt Date: 20071113
  Transmission Date: 20080703
  Serious: No
  Sender: FDA-Public Use
  Company Number: WAES 0711USA02948

PATIENT
  Age: 83 Year
  Sex: Female

DRUGS (4)
  1. JANUVIA [Suspect]
     Indication: DIABETES MELLITUS
     Dosage: 50 MG/BID/PO; 50 MG/DAILY/PO; 100 MG/DAILY/PO
     Route: 048
     Dates: start: 20071101, end: 20071101
  2. JANUVIA [Suspect]
     Indication: DIABETES MELLITUS
     Dosage: 50 MG/BID/PO; 50 MG/DAILY/PO; 100 MG/DAILY/PO
     Route: 048
     Dates: start: 20071101, end: 20071101
  3. JANUVIA [Suspect]
     Indication: DIABETES MELLITUS
     Dosage: 50 MG/BID/PO; 50 MG/DAILY/PO; 100 MG/DAILY/PO
     Route: 048
     Dates: start: 20071101
  4. LOTREL [Concomitant]

REACTIONS (8)
  - CONSTIPATION [None]
  - DIZZINESS [None]
  - DRUG INEFFECTIVE [None]
  - EYE DISORDER [None]
  - FEELING JITTERY [None]
  - GAIT DISTURBANCE [None]
  - HEADACHE [None]
  - INAPPROPRIATE SCHEDULE OF DRUG ADMINISTRATION [None]
